FAERS Safety Report 8235476-5 (Version None)
Quarter: 2012Q1

REPORT INFORMATION
  Report Type: 
  Country: None (occurrence: None)
  Receive Date: 20120326
  Receipt Date: 20120323
  Transmission Date: 20120608
  Serious: Yes (Other)
  Sender: FDA-Public Use
  Company Number: US-PFIZER INC-2012000507

PATIENT
  Sex: Female
  Weight: 49.887 kg

DRUGS (15)
  1. KEPPRA [Concomitant]
     Indication: EPILEPSY
     Dosage: 500 MG, UNK
  2. SOMA [Concomitant]
     Indication: MUSCLE RELAXANT THERAPY
  3. CHANTIX [Suspect]
     Dosage: UNK
     Route: 048
     Dates: start: 20120101, end: 20120202
  4. CHANTIX [Suspect]
     Dosage: UNK, 2X/DAY
     Route: 048
     Dates: end: 20120101
  5. VALIUM [Concomitant]
     Dosage: UNK
  6. CLONAZEPAM [Concomitant]
     Indication: INSOMNIA
     Dosage: UNK, ONCE AT NIGHT
  7. DIAZEPAM [Concomitant]
     Dosage: UNK
  8. KEPPRA [Concomitant]
     Indication: CONFUSIONAL STATE
  9. VICODIN [Concomitant]
     Dosage: UNK, 3X/DAY
  10. KEPPRA [Concomitant]
     Indication: CONVULSION
  11. SOMA [Concomitant]
     Indication: FIBROMYALGIA
     Dosage: UNK
  12. CHANTIX [Suspect]
     Indication: SMOKING CESSATION THERAPY
     Dosage: 0.5 MG, 1X/DAY
     Route: 048
     Dates: start: 20111221, end: 20120101
  13. CHANTIX [Suspect]
     Dosage: UNK
     Route: 048
     Dates: start: 20120101, end: 20120101
  14. CHANTIX [Suspect]
     Dosage: 1 MG, 2X/DAY
     Route: 048
     Dates: start: 20120101, end: 20120101
  15. TEMAZEPAM [Concomitant]
     Indication: SLEEP DISORDER
     Dosage: UNK

REACTIONS (27)
  - AGITATION [None]
  - APHONIA [None]
  - DYSPHONIA [None]
  - TOOTH FRACTURE [None]
  - FEELING ABNORMAL [None]
  - ABNORMAL DREAMS [None]
  - HYPOTENSION [None]
  - FIBROMYALGIA [None]
  - PAIN IN JAW [None]
  - FLATULENCE [None]
  - PAIN [None]
  - ANGER [None]
  - EPILEPSY [None]
  - TUBERCULOSIS [None]
  - COUGH [None]
  - ANXIETY [None]
  - DEPRESSION [None]
  - AGGRESSION [None]
  - EMOTIONAL DISORDER [None]
  - STRESS [None]
  - FALL [None]
  - HEADACHE [None]
  - INSOMNIA [None]
  - NIGHTMARE [None]
  - PARANOIA [None]
  - LOOSE TOOTH [None]
  - INFECTION [None]
